FAERS Safety Report 25752246 (Version 1)
Quarter: 2025Q3

REPORT INFORMATION
  Report Type: Other
  Country: BR (occurrence: BR)
  Receive Date: 20250902
  Receipt Date: 20250902
  Transmission Date: 20251020
  Serious: Yes (Life-Threatening, Hospitalization)
  Sender: AIRGAS
  Company Number: BR-ALSI-2025000231

PATIENT
  Age: 43 Year
  Sex: Male

DRUGS (8)
  1. NITROUS OXIDE [Suspect]
     Active Substance: NITROUS OXIDE
     Indication: General anaesthesia
  2. NANDROLONE [Suspect]
     Active Substance: NANDROLONE
  3. PROPOFOL [Concomitant]
     Active Substance: PROPOFOL
  4. LIDOCAINE [Concomitant]
     Active Substance: LIDOCAINE
  5. CISATRACURIUM [Concomitant]
     Active Substance: CISATRACURIUM
  6. FENTANYL [Concomitant]
     Active Substance: FENTANYL
  7. MIDAZOLAM [Concomitant]
     Active Substance: MIDAZOLAM
  8. ISOFLURANE [Suspect]
     Active Substance: ISOFLURANE

REACTIONS (1)
  - Hyperthermia malignant [Recovered/Resolved]
